FAERS Safety Report 7579269-0 (Version None)
Quarter: 2011Q2

REPORT INFORMATION
  Report Type: 
  Country: None (occurrence: None)
  Receive Date: 20110628
  Receipt Date: 20110622
  Transmission Date: 20111010
  Serious: Yes (Death)
  Sender: FDA-Public Use
  Company Number: US-CELGENEUS-163-21880-11063083

PATIENT
  Age: 30 Year
  Sex: Male

DRUGS (8)
  1. ALLOPURINOL [Concomitant]
     Route: 065
  2. PROAIR HFA [Concomitant]
     Route: 065
  3. OXYCONTIN [Concomitant]
     Route: 065
  4. PROMETHAZINE [Concomitant]
     Route: 065
  5. REVLIMID [Suspect]
     Indication: NON-HODGKIN'S LYMPHOMA
     Dosage: 25 MILLIGRAM
     Route: 048
     Dates: start: 20090729, end: 20091101
  6. OXYCODONE HCL AND ACETAMINOPHEN [Concomitant]
     Route: 065
  7. M-OXY [Concomitant]
     Route: 065
  8. HYDROXYMORPHONE [Concomitant]
     Route: 065

REACTIONS (2)
  - NON-HODGKIN'S LYMPHOMA [None]
  - DEATH [None]
